FAERS Safety Report 7638584-2 (Version None)
Quarter: 2011Q3

REPORT INFORMATION
  Report Type: 
  Country: None (occurrence: None)
  Receive Date: 20110727
  Receipt Date: 20110719
  Transmission Date: 20111222
  Serious: Yes (Hospitalization, Other)
  Sender: FDA-Public Use
  Company Number: US-ASTELLAS-2011US002228

PATIENT
  Sex: Male

DRUGS (9)
  1. ALPRAZOLAM [Concomitant]
     Indication: PRODUCT USED FOR UNKNOWN INDICATION
     Dosage: UNK
     Route: 065
  2. SINEMET [Concomitant]
     Indication: PRODUCT USED FOR UNKNOWN INDICATION
     Dosage: 50/200 MG, QID
     Route: 065
  3. EXELON [Interacting]
     Indication: PRODUCT USED FOR UNKNOWN INDICATION
     Dosage: 4.6 MG, UNKNOWN/D
     Route: 062
  4. STALEVO 100 [Concomitant]
     Indication: PRODUCT USED FOR UNKNOWN INDICATION
     Dosage: UNK
     Route: 065
  5. PROSCAR [Concomitant]
     Indication: NOCTURIA
     Dosage: 5 MG, UNKNOWN/D
     Route: 065
     Dates: start: 20100901
  6. REQUIP XL [Concomitant]
     Indication: PRODUCT USED FOR UNKNOWN INDICATION
     Dosage: UNK
     Route: 065
  7. VESICARE [Suspect]
     Indication: NOCTURIA
     Dosage: 10 MG, UID/QD
     Route: 048
     Dates: start: 20100901, end: 20110512
  8. UROXATRAL [Concomitant]
     Indication: PRODUCT USED FOR UNKNOWN INDICATION
     Dosage: UNK
     Route: 065
  9. AZILECT [Concomitant]
     Indication: PRODUCT USED FOR UNKNOWN INDICATION

REACTIONS (12)
  - ERECTILE DYSFUNCTION [None]
  - SUICIDAL IDEATION [None]
  - PARKINSON'S DISEASE [None]
  - BENIGN PROSTATIC HYPERPLASIA [None]
  - SKULL FRACTURE [None]
  - SYNCOPE [None]
  - HYPERSEXUALITY [None]
  - DRUG INTERACTION [None]
  - HALLUCINATION [None]
  - DRUG INEFFECTIVE FOR UNAPPROVED INDICATION [None]
  - CRANIOCEREBRAL INJURY [None]
  - DELIRIUM [None]
